FAERS Safety Report 9163225 (Version 1)
Quarter: 2013Q1

REPORT INFORMATION
  Report Type: Spontaneous
  Country: US (occurrence: None)
  Receive Date: 20130313
  Receipt Date: 20130313
  Transmission Date: 20140127
  Serious: Yes (Other)
  Sender: FDA-Public Use
  Company Number: None

PATIENT
  Age: 73 Year
  Sex: Female
  Weight: 81.65 kg

DRUGS (1)
  1. TAMIFLU 75MG GENENTECH [Suspect]
     Indication: INFLUENZA
     Dosage: 1 CAPSULE 2XDAY PO
     Route: 048
     Dates: start: 20130213, end: 20130217

REACTIONS (1)
  - Vertigo [None]
